FAERS Safety Report 20206571 (Version 1)
Quarter: 2021Q4

REPORT INFORMATION
  Report Type: Spontaneous
  Country: US (occurrence: None)
  Receive Date: 20211218
  Receipt Date: 20211218
  Transmission Date: 20220303
  Serious: Yes (Life-Threatening, Hospitalization, Other)
  Sender: FDA-Public Use
  Company Number: None

PATIENT
  Age: 44 Year
  Sex: Male
  Weight: 77.85 kg

DRUGS (3)
  1. TRAMADOL HYDROCHLORIDE [Suspect]
     Active Substance: TRAMADOL HYDROCHLORIDE
     Indication: Postoperative analgesia
     Dosage: FREQUENCY : EVERY 6 HOURS;?
     Route: 048
     Dates: start: 20211115, end: 20211215
  2. SERTRALINE [Concomitant]
     Active Substance: SERTRALINE HYDROCHLORIDE
  3. ROSUVASTAIN 10m [Concomitant]

REACTIONS (11)
  - Feeling hot [None]
  - Dizziness [None]
  - Loss of consciousness [None]
  - Seizure [None]
  - Fall [None]
  - Skull fracture [None]
  - Skin laceration [None]
  - Tooth fracture [None]
  - Concussion [None]
  - Drug interaction [None]
  - Serotonin syndrome [None]

NARRATIVE: CASE EVENT DATE: 20211115
